FAERS Safety Report 8998930 (Version 1)
Quarter: 2013Q1

REPORT INFORMATION
  Report Type: Spontaneous
  Country: FR (occurrence: FR)
  Receive Date: 20130103
  Receipt Date: 20130103
  Transmission Date: 20140127
  Serious: Yes (Hospitalization)
  Sender: FDA-Public Use
  Company Number: FR-UCBSA-073894

PATIENT
  Sex: Male

DRUGS (7)
  1. VIMPAT [Suspect]
     Dosage: 100 MG X 1.5 UNIT DAILY
     Route: 048
     Dates: start: 2012, end: 20120322
  2. KEPPRA [Suspect]
     Dosage: 500 MG 4 UNITS DAILY
     Route: 048
     Dates: start: 201110
  3. KEPPRA [Suspect]
     Dosage: 750 MG + 250 MG
     Route: 048
  4. KEPPRA [Suspect]
     Dosage: 500 MG + 250 MG
     Route: 048
     Dates: end: 20120615
  5. TEGRETOL [Concomitant]
  6. KARDEGIC [Concomitant]
     Dosage: 160 MG
  7. TERCIAN [Concomitant]
     Dosage: 5-10-15 , DROPS

REACTIONS (10)
  - Abnormal behaviour [Recovered/Resolved]
  - Confusional state [Recovered/Resolved]
  - Hallucination [Recovered/Resolved]
  - Amnestic disorder [Recovered/Resolved]
  - Paranoid personality disorder [Recovered/Resolved]
  - Gait disturbance [Unknown]
  - Clonus [Unknown]
  - Delirium [Unknown]
  - Injury [Unknown]
  - Fall [Unknown]
